FAERS Safety Report 13944999 (Version 2)
Quarter: 2017Q4

REPORT INFORMATION
  Report Type: Spontaneous
  Country: GB (occurrence: GB)
  Receive Date: 20170907
  Receipt Date: 20171003
  Transmission Date: 20180320
  Serious: Yes (Hospitalization, Other)
  Sender: FDA-Public Use
  Company Number: GB-PFIZER INC-2017350370

PATIENT
  Age: 71 Year
  Sex: Female

DRUGS (9)
  1. PARACETAMOL [Concomitant]
     Active Substance: ACETAMINOPHEN
     Dosage: 1000 MG, AS NEEDED (FOUR TIMES A DAY)
  2. OMEPRAZOLE. [Concomitant]
     Active Substance: OMEPRAZOLE
     Dosage: 10 MG, 1X/DAY
  3. METHOTREXATE SODIUM. [Suspect]
     Active Substance: METHOTREXATE SODIUM
     Dosage: 20 MG, WEEKLY
  4. MELOPHTHAL [Concomitant]
     Dosage: 0.4 ML, AS NEEDED (USED DOSE UNITS ABOUT 5 TIMES A DAY IN EACH EYE)
  5. CLOPIDOGREL [Concomitant]
     Active Substance: CLOPIDOGREL BISULFATE
     Dosage: 75 MG, 1X/DAY
  6. COCODAMOL [Concomitant]
     Active Substance: ACETAMINOPHEN\CODEINE PHOSPHATE
     Dosage: 2 DF, 1X/DAY([CODEINE PHOSPHATE (15MG), PARACETAMOL (500MG)] AT NIGHT
  7. FOLIC ACID. [Concomitant]
     Active Substance: FOLIC ACID
     Dosage: 5 MG, 1X/DAY (ONCE A DAY, EACH DAY EXCEPT TUESDAYS)
  8. SIMVASTATIN. [Concomitant]
     Active Substance: SIMVASTATIN
     Dosage: 40 MG, 1X/DAY (ONCE A DAY AT NIGHT)
  9. ADCAL D3 [Concomitant]
     Active Substance: CALCIUM CARBONATE\CHOLECALCIFEROL
     Dosage: 1 DF, 2X/DAY ([CALCIUM CARBONATE (1500MG)/COLECALCIFEROL (400 UNIT)])

REACTIONS (3)
  - Clostridium difficile infection [Unknown]
  - Blast cells present [Unknown]
  - Pancytopenia [Recovered/Resolved]
